FAERS Safety Report 10175833 (Version 1)
Quarter: 2014Q2

REPORT INFORMATION
  Report Type: Spontaneous
  Country: US (occurrence: None)
  Receive Date: 20140425
  Receipt Date: 20140425
  Transmission Date: 20141212
  Serious: No
  Sender: FDA-Public Use
  Company Number: AP356-00323-SPO-US

PATIENT
  Age: 47 Year
  Sex: Male
  Weight: 118 kg

DRUGS (2)
  1. BELVIQ (LORCASERIN HYDROCHLORIDE) [Suspect]
     Indication: WEIGHT DECREASED
     Dosage: 2 IN 1 D
     Route: 048
  2. VICODIN (VICODIN) [Concomitant]

REACTIONS (1)
  - Drug ineffective [None]
